FAERS Safety Report 6070993-8 (Version None)
Quarter: 2009Q1

REPORT INFORMATION
  Report Type: 
  Country: None (occurrence: None)
  Receive Date: 20090209
  Receipt Date: 20090204
  Transmission Date: 20090719
  Serious: Yes (Death)
  Sender: FDA-Public Use
  Company Number: A0767245A

PATIENT
  Age: 69 Year
  Sex: Female
  Weight: 46 kg

DRUGS (1)
  1. AVANDIA [Suspect]
     Dates: start: 20050101, end: 20080920

REACTIONS (1)
  - GASTROINTESTINAL CARCINOMA [None]
